FAERS Safety Report 11848617 (Version 2)
Quarter: 2016Q1

REPORT INFORMATION
  Report Type: Report from Study
  Country: CA (occurrence: CA)
  Receive Date: 20151218
  Receipt Date: 20160106
  Transmission Date: 20160526
  Serious: Yes (Other)
  Sender: FDA-Public Use
  Company Number: CA-ROCHE-1652317

PATIENT
  Age: 76 Year
  Sex: Male

DRUGS (19)
  1. DIPHENHYDRAMINE. [Concomitant]
     Active Substance: DIPHENHYDRAMINE
  2. AVODART [Concomitant]
     Active Substance: DUTASTERIDE
  3. DOMPERIDONE [Concomitant]
     Active Substance: DOMPERIDONE
  4. TECTA [Concomitant]
     Active Substance: PANTOPRAZOLE MAGNESIUM
  5. IMODIUM [Concomitant]
     Active Substance: LOPERAMIDE HYDROCHLORIDE
  6. ESBRIET [Suspect]
     Active Substance: PIRFENIDONE
     Indication: IDIOPATHIC PULMONARY FIBROSIS
     Route: 048
     Dates: start: 20150903
  7. ESBRIET [Suspect]
     Active Substance: PIRFENIDONE
     Route: 048
     Dates: start: 2015
  8. IMOVANE [Concomitant]
     Active Substance: ZOPICLONE
  9. CIPROLEX [Concomitant]
     Active Substance: CIPROFLOXACIN HYDROCHLORIDE
  10. ESBRIET [Suspect]
     Active Substance: PIRFENIDONE
     Dosage: AFTER ADMINISTERATION OF 534 MG TID HE SWITCHED TO THIS THERAPY.
     Route: 048
     Dates: start: 2015
  11. ESBRIET [Suspect]
     Active Substance: PIRFENIDONE
     Route: 048
     Dates: start: 20151202, end: 20151221
  12. WARFARIN [Concomitant]
     Active Substance: WARFARIN
  13. EZETROL [Concomitant]
     Active Substance: EZETIMIBE
  14. MIROPIN [Concomitant]
  15. ACETYLSALICYLIC ACID [Concomitant]
     Active Substance: ASPIRIN
  16. WELLBUTRIN [Concomitant]
     Active Substance: BUPROPION HYDROCHLORIDE
  17. AMLODIPINE [Concomitant]
     Active Substance: AMLODIPINE BESYLATE
  18. DOXEPIN [Concomitant]
     Active Substance: DOXEPIN
  19. AMLODIPINE [Concomitant]
     Active Substance: AMLODIPINE BESYLATE

REACTIONS (6)
  - Apathy [Unknown]
  - Insomnia [Not Recovered/Not Resolved]
  - Anxiety [Not Recovered/Not Resolved]
  - Memory impairment [Not Recovered/Not Resolved]
  - Fatigue [Unknown]
  - Malaise [Unknown]

NARRATIVE: CASE EVENT DATE: 2015
